FAERS Safety Report 19774631 (Version 2)
Quarter: 2021Q3

REPORT INFORMATION
  Report Type: Spontaneous
  Country: US (occurrence: US)
  Receive Date: 20210901
  Receipt Date: 20210902
  Transmission Date: 20211014
  Serious: No
  Sender: FDA-Public Use
  Company Number: US-JNJFOC-20210855757

PATIENT
  Sex: Male

DRUGS (3)
  1. IMODIUM MULTI?SYMPTOM RELIEF [Suspect]
     Active Substance: DIMETHICONE\LOPERAMIDE HYDROCHLORIDE
     Indication: DIARRHOEA
     Dosage: 2 AT FIRST LOOSE STOOL AND 1 ON THE SUBSEQUENT LOOSE  STOOL TWICE
     Route: 065
     Dates: start: 20210826
  2. IMODIUM MULTI?SYMPTOM RELIEF [Suspect]
     Active Substance: DIMETHICONE\LOPERAMIDE HYDROCHLORIDE
     Indication: MUSCLE SPASMS
  3. IMODIUM MULTI?SYMPTOM RELIEF [Suspect]
     Active Substance: DIMETHICONE\LOPERAMIDE HYDROCHLORIDE
     Indication: ABDOMINAL DISTENSION

REACTIONS (1)
  - Abdominal distension [Unknown]

NARRATIVE: CASE EVENT DATE: 20210826
